FAERS Safety Report 7450591-1 (Version None)
Quarter: 2011Q2

REPORT INFORMATION
  Report Type: 
  Country: None (occurrence: None)
  Receive Date: 20110502
  Receipt Date: 20110419
  Transmission Date: 20111010
  Serious: Yes (Other)
  Sender: FDA-Public Use
  Company Number: US-ELI_LILLY_AND_COMPANY-US201008005151

PATIENT
  Sex: Female

DRUGS (9)
  1. FISH OIL [Concomitant]
     Dosage: 1200 MG, DAILY (1/D)
  2. VITAMIN B-12 [Concomitant]
     Dosage: 2500 UG, DAILY (1/D)
  3. FORTEO [Suspect]
     Indication: OSTEOPOROSIS
     Dosage: 20 UG, DAILY (1/D)
     Dates: start: 20100101
  4. LAMOTRIGINE [Concomitant]
     Dosage: 100 MG, 2/D
  5. CALCIUM [Concomitant]
     Dosage: 600 MG, 3/D
  6. FEXOFENADINE [Concomitant]
     Dosage: 60 MG, DAILY (1/D)
  7. FORTEO [Suspect]
     Dosage: 20 UG, DAILY (1/D)
  8. TOPIRAMATE [Concomitant]
     Dosage: 100 D/F, 2/D
  9. VITAMINS [Concomitant]
     Dosage: 1000 IU, UNK

REACTIONS (5)
  - NEPHROLITHIASIS [None]
  - DIZZINESS [None]
  - POLYP [None]
  - BALANCE DISORDER [None]
  - BLOOD CHOLESTEROL INCREASED [None]
